FAERS Safety Report 19850304 (Version 4)
Quarter: 2022Q1

REPORT INFORMATION
  Report Type: Report from Study
  Country: US (occurrence: US)
  Receive Date: 20210917
  Receipt Date: 20220314
  Transmission Date: 20220423
  Serious: No
  Sender: FDA-Public Use
  Company Number: NVSC2021US211680

PATIENT
  Sex: Female

DRUGS (1)
  1. COSENTYX [Suspect]
     Active Substance: SECUKINUMAB
     Indication: Psoriatic arthropathy
     Dosage: UNK UNK, QMO (BENEATH THE SKIN, USUALLY VIA AINJECTION)
     Route: 058

REACTIONS (4)
  - Inflammation [Unknown]
  - Drug ineffective [Unknown]
  - Arthralgia [Unknown]
  - Nasopharyngitis [Unknown]
